FAERS Safety Report 9299341 (Version 1)
Quarter: 2013Q2

REPORT INFORMATION
  Report Type: Spontaneous
  Country: FR (occurrence: FR)
  Receive Date: 20130520
  Receipt Date: 20130520
  Transmission Date: 20140414
  Serious: Yes (Hospitalization, Other)
  Sender: FDA-Public Use
  Company Number: FR-PFIZER INC-2013147431

PATIENT
  Age: 55 Year
  Sex: Male

DRUGS (15)
  1. DALACINE [Suspect]
     Dosage: 600 MG, 3X/DAY
     Route: 048
     Dates: start: 20130412, end: 20130415
  2. LAROXYL [Suspect]
     Indication: NEURALGIA
     Dosage: 10 GTT, 1X/DAY
     Route: 048
     Dates: start: 20130412
  3. VANCOMYCIN MYLAN [Suspect]
     Dosage: 2 G, 1X/DAY
     Route: 042
     Dates: start: 20130409, end: 20130411
  4. GENTAMICIN ^PANPHARMA^ [Suspect]
     Dosage: UNK
     Route: 042
     Dates: start: 20130409, end: 20130411
  5. ACUPAN [Suspect]
     Dosage: 6 DF, 1X/HOUR
     Route: 042
     Dates: start: 20130409, end: 20130411
  6. PLAVIX [Concomitant]
     Dosage: 75 MG DAILY
  7. LYRICA [Concomitant]
     Dosage: 300 MG, 2X/DAY
  8. TRILEPTAL [Concomitant]
     Dosage: 600 MG AND 300 MG DAILY
  9. SOTALEX [Concomitant]
     Dosage: 80 MG, 1X/DAY
  10. PROZAC [Concomitant]
     Dosage: 20 MG DAILY
  11. XANAX [Concomitant]
     Dosage: 0.5 MG DAILY
  12. TAHOR [Concomitant]
     Dosage: 40 MG DAILY
  13. LANZOR [Concomitant]
     Dosage: 30 MG DAILY
  14. ATARAX [Concomitant]
     Dosage: 25 MG DAILY
  15. TEMESTA [Concomitant]
     Dosage: 1 MG DAILY

REACTIONS (2)
  - Hepatitis cholestatic [Recovering/Resolving]
  - Hepatitis [Recovering/Resolving]
